FAERS Safety Report 9807289 (Version 2)
Quarter: 2014Q1

REPORT INFORMATION
  Report Type: Spontaneous
  Country: DE (occurrence: DE)
  Receive Date: 20140110
  Receipt Date: 20140130
  Transmission Date: 20141002
  Serious: Yes (Death)
  Sender: FDA-Public Use
  Company Number: DE-BAXTER-2014BAX000240

PATIENT
  Sex: Female

DRUGS (4)
  1. EXTRANEAL [Suspect]
     Indication: PERITONEAL DIALYSIS
     Route: 033
  2. EXTRANEAL [Suspect]
     Indication: CARDIORENAL SYNDROME
  3. NUTRINEAL PD4 MIT 1,1% AMINOS?UREN [Suspect]
     Indication: PERITONEAL DIALYSIS
     Route: 033
  4. NUTRINEAL PD4 MIT 1,1% AMINOS?UREN [Suspect]
     Indication: CARDIORENAL SYNDROME

REACTIONS (1)
  - Cardiac failure [Fatal]
